FAERS Safety Report 6188991-2 (Version None)
Quarter: 2009Q2

REPORT INFORMATION
  Report Type: 
  Country: None (occurrence: None)
  Receive Date: 20090512
  Receipt Date: 20090512
  Transmission Date: 20091009
  Serious: Yes (Hospitalization)
  Sender: FDA-Public Use
  Company Number: None

PATIENT
  Age: 85 Year
  Sex: Female
  Weight: 47.6277 kg

DRUGS (2)
  1. SYMMETREL [Suspect]
     Indication: PARKINSON'S DISEASE
     Dosage: 200MG B I D Q 12 H PO
     Route: 048
     Dates: start: 20090504, end: 20090506
  2. INSULIN [Concomitant]

REACTIONS (4)
  - DISORIENTATION [None]
  - DRUG DISPENSING ERROR [None]
  - HALLUCINATION [None]
  - MEDICATION ERROR [None]
